FAERS Safety Report 6805849-3 (Version None)
Quarter: 2010Q2

REPORT INFORMATION
  Report Type: 
  Country: None (occurrence: None)
  Receive Date: 20100629
  Receipt Date: 20071019
  Transmission Date: 20101027
  Serious: No
  Sender: FDA-Public Use
  Company Number: US-PFIZER INC-2007088879

PATIENT
  Sex: Female

DRUGS (1)
  1. XANAX [Suspect]
     Indication: ANXIETY

REACTIONS (4)
  - ALOPECIA [None]
  - ARTHRALGIA [None]
  - PAIN IN EXTREMITY [None]
  - RESTLESSNESS [None]
